FAERS Safety Report 25172423 (Version 1)
Quarter: 2025Q2

REPORT INFORMATION
  Report Type: Spontaneous
  Country: US (occurrence: US)
  Receive Date: 20250408
  Receipt Date: 20250408
  Transmission Date: 20250716
  Serious: Yes (Hospitalization, Other)
  Sender: HIKMA
  Company Number: US-HIKMA PHARMACEUTICALS USA INC.-US-H14001-25-02976

PATIENT
  Sex: Female

DRUGS (6)
  1. DILAUDID [Suspect]
     Active Substance: HYDROMORPHONE HYDROCHLORIDE
     Indication: Pain
     Route: 065
     Dates: start: 20250220
  2. KEYTRUDA [Suspect]
     Active Substance: PEMBROLIZUMAB
     Indication: Product used for unknown indication
     Route: 065
  3. LENVIMA [Suspect]
     Active Substance: LENVATINIB
     Indication: Product used for unknown indication
     Route: 065
     Dates: start: 20250126
  4. LENVIMA [Suspect]
     Active Substance: LENVATINIB
     Route: 065
     Dates: start: 20250308
  5. MORPHINE [Suspect]
     Active Substance: MORPHINE
     Indication: Pain
     Route: 065
     Dates: start: 20250220
  6. ELIQUIS [Concomitant]
     Active Substance: APIXABAN
     Indication: Product used for unknown indication
     Route: 065

REACTIONS (11)
  - Mental status changes [Unknown]
  - Pancreatitis [Unknown]
  - Hepatic mass [Unknown]
  - Blood pressure abnormal [Recovered/Resolved]
  - Hyperthyroidism [Unknown]
  - Gastrointestinal disorder [Unknown]
  - Constipation [Recovered/Resolved]
  - Bowel movement irregularity [Recovered/Resolved]
  - Facial pain [Unknown]
  - Pain in jaw [Unknown]
  - Neck pain [Unknown]

NARRATIVE: CASE EVENT DATE: 20250101
